FAERS Safety Report 5056102-2 (Version None)
Quarter: 2006Q3

REPORT INFORMATION
  Report Type: 
  Country: None (occurrence: None)
  Receive Date: 20060717
  Receipt Date: 20060711
  Transmission Date: 20061208
  Serious: Yes (Other)
  Sender: FDA-Public Use
  Company Number: DE-2006-002229

PATIENT
  Age: 28 Year
  Sex: Female
  Weight: 55 kg

DRUGS (1)
  1. MIRENA [Suspect]
     Indication: CONTRACEPTION
     Dosage: 20 UG/DAY, CONT, INTRA-UTERINE
     Route: 015
     Dates: start: 20020701, end: 20060109

REACTIONS (4)
  - AMENORRHOEA [None]
  - CERVIX CARCINOMA STAGE 0 [None]
  - DEVICE BREAKAGE [None]
  - HUMAN PAPILLOMA VIRUS TEST POSITIVE [None]
